FAERS Safety Report 5943574-1 (Version None)
Quarter: 2008Q4

REPORT INFORMATION
  Report Type: 
  Country: None (occurrence: None)
  Receive Date: 20081106
  Receipt Date: 20081029
  Transmission Date: 20090506
  Serious: Yes (Hospitalization, Other)
  Sender: FDA-Public Use
  Company Number: PHHY2008CA26541

PATIENT
  Sex: Male

DRUGS (1)
  1. SANDOSTATIN LAR [Suspect]
     Indication: ACROMEGALY
     Dosage: 30MG EVERY 4 WEEKS
     Route: 030
     Dates: start: 20040901

REACTIONS (2)
  - GALLBLADDER DISORDER [None]
  - PANCREATITIS [None]
